FAERS Safety Report 19389023 (Version 1)
Quarter: 2021Q2

REPORT INFORMATION
  Report Type: Spontaneous
  Country: US (occurrence: US)
  Receive Date: 20210607
  Receipt Date: 20210607
  Transmission Date: 20210717
  Serious: No
  Sender: FDA-Public Use
  Company Number: US-FDC LIMITED-2020RIS00389

PATIENT
  Sex: Female

DRUGS (8)
  1. FLAREX [Suspect]
     Active Substance: FLUOROMETHOLONE ACETATE
     Dosage: 1 DROP, 1X/DAY
     Dates: start: 202008, end: 2020
  2. FLAREX [Suspect]
     Active Substance: FLUOROMETHOLONE ACETATE
     Dosage: 1 DROP, 1X/DAY
     Dates: start: 2020
  3. TIMOLOL MALEATE. [Suspect]
     Active Substance: TIMOLOL MALEATE
     Dosage: IN 1 EYE
     Dates: start: 202008
  4. FLAREX [Suspect]
     Active Substance: FLUOROMETHOLONE ACETATE
     Indication: VISUAL ACUITY REDUCED
     Dosage: UNK, TAPERED DOSE
     Dates: start: 202008, end: 202008
  5. FLAREX [Suspect]
     Active Substance: FLUOROMETHOLONE ACETATE
     Indication: VISION BLURRED
     Dosage: 3 DROP, 2X/DAY
     Dates: start: 202008, end: 202008
  6. TIMOLOL MALEATE. [Suspect]
     Active Substance: TIMOLOL MALEATE
     Indication: GLAUCOMA
     Dosage: UNK
     Dates: start: 2016
  7. FLAREX [Suspect]
     Active Substance: FLUOROMETHOLONE ACETATE
     Dosage: 1 DROP, 1X/DAY
     Dates: start: 202008, end: 202008
  8. TIMOLOL MALEATE. [Suspect]
     Active Substance: TIMOLOL MALEATE
     Dosage: INTO OTHER EYE
     Dates: start: 202008

REACTIONS (5)
  - Eye pain [Recovered/Resolved]
  - Vision blurred [Recovering/Resolving]
  - Ocular hyperaemia [Recovered/Resolved]
  - Visual acuity reduced [Unknown]
  - Photophobia [Recovered/Resolved]

NARRATIVE: CASE EVENT DATE: 2020
